FAERS Safety Report 4129907 (Version 6)
Quarter: 2020Q3

REPORT INFORMATION
  Report Type: Report from Study
  Country: CA (occurrence: CA)
  Receive Date: 20040414
  Receipt Date: 20050510
  Transmission Date: 20201104
  Serious: Yes (Hospitalization)
  Sender: FDA-Public Use
  Company Number: CA-JNJFOC-20040400629

PATIENT
  Age: 64 Year
  Sex: Female

DRUGS (4)
  1. PLACEBO [Suspect]
     Active Substance: UNSPECIFIED INGREDIENT
     Indication: PSORIASIS
     Route: 042
  2. RESTORIL [Concomitant]
     Active Substance: TEMAZEPAM
     Route: 049
  3. FOLIC ACID. [Concomitant]
     Active Substance: FOLIC ACID
     Route: 049
  4. PLACEBO [Suspect]
     Active Substance: UNSPECIFIED INGREDIENT
     Route: 042

REACTIONS (6)
  - Pyrexia [None]
  - Psoriasis [Recovering/Resolving]
  - Pain [None]
  - Dehydration [None]
  - Skin infection [None]
  - Chills [None]

NARRATIVE: CASE EVENT DATE: 20040401
